FAERS Safety Report 19513921 (Version 1)
Quarter: 2021Q3

REPORT INFORMATION
  Report Type: Spontaneous
  Country: US (occurrence: US)
  Receive Date: 20210709
  Receipt Date: 20210709
  Transmission Date: 20211014
  Serious: No
  Sender: FDA-Public Use
  Company Number: US-AVEO ONCOLOGY-2021-AVEO-US003355

PATIENT

DRUGS (8)
  1. ACETAMINOPHEN. [Concomitant]
     Active Substance: ACETAMINOPHEN
  2. FOTIVDA [Suspect]
     Active Substance: TIVOZANIB HYDROCHLORIDE
     Indication: RENAL CELL CARCINOMA
     Dosage: 1.34 MG , DAILY 21 DAYS, 7DAYS OFF
  3. GABAPENTIN. [Concomitant]
     Active Substance: GABAPENTIN
  4. DRONABINOL. [Concomitant]
     Active Substance: DRONABINOL
  5. OXYCODONE [Concomitant]
     Active Substance: OXYCODONE
  6. PANTOPRAZOLE [Concomitant]
     Active Substance: PANTOPRAZOLE
     Dosage: UNK UNK, CYCLIC
  7. MYLANTA [Concomitant]
     Active Substance: ALUMINUM HYDROXIDE\DIMETHICONE\MAGNESIUM HYDROXIDE
  8. CARAFATE [Concomitant]
     Active Substance: SUCRALFATE

REACTIONS (2)
  - General physical health deterioration [Unknown]
  - Neoplasm progression [Unknown]
